FAERS Safety Report 5472383-5 (Version None)
Quarter: 2007Q3

REPORT INFORMATION
  Report Type: 
  Country: None (occurrence: None)
  Receive Date: 20070927
  Receipt Date: 20070919
  Transmission Date: 20080115
  Serious: Yes (Other)
  Sender: FDA-Public Use
  Company Number: 2006SP008914

PATIENT
  Age: 48 Year
  Sex: Female

DRUGS (7)
  1. PEG-INTRON [Suspect]
     Indication: HEPATITIS C
     Dosage: SC; SC
     Route: 058
     Dates: start: 20060605, end: 20070430
  2. PEG-INTRON [Suspect]
     Indication: HEPATITIS C
     Dosage: SC; SC
     Route: 058
     Dates: start: 20070919
  3. RIBAVIRIN [Suspect]
     Indication: HEPATITIS C
     Dosage: PO; PO
     Route: 048
     Dates: start: 20060605, end: 20070430
  4. RIBAVIRIN [Suspect]
     Indication: HEPATITIS C
     Dosage: PO; PO
     Route: 048
     Dates: start: 20070919
  5. ACETAMINOPHEN AND HYDROCODONE BITARTRATE [Concomitant]
  6. SOMA [Concomitant]
  7. ZOLOFT [Concomitant]

REACTIONS (16)
  - ANOREXIA [None]
  - ARTHRALGIA [None]
  - BLOOD POTASSIUM DECREASED [None]
  - CONTUSION [None]
  - DIZZINESS [None]
  - DRY EYE [None]
  - DRY SKIN [None]
  - INJECTION SITE ERYTHEMA [None]
  - JOINT SWELLING [None]
  - MENSTRUATION IRREGULAR [None]
  - MOUTH ULCERATION [None]
  - NAUSEA [None]
  - OEDEMA PERIPHERAL [None]
  - RASH MACULAR [None]
  - RASH PRURITIC [None]
  - THERAPEUTIC RESPONSE DECREASED [None]
